FAERS Safety Report 9320300 (Version 1)
Quarter: 2013Q2

REPORT INFORMATION
  Report Type: Spontaneous
  Country: US (occurrence: US)
  Receive Date: 20130530
  Receipt Date: 20130530
  Transmission Date: 20140414
  Serious: No
  Sender: FDA-Public Use
  Company Number: US-UPSHER-SMITH LABORATORIES, INC.-12000489

PATIENT
  Sex: Female
  Weight: 68 kg

DRUGS (10)
  1. POTASSIUM CHLORIDE ER [Suspect]
     Indication: MINERAL SUPPLEMENTATION
     Dosage: 20 MEQ, QD
     Route: 048
     Dates: start: 201201, end: 2012
  2. POTASSIUM CHLORIDE ER [Suspect]
     Dosage: 20 MEQ, BID
     Route: 048
     Dates: start: 2012
  3. WARFARIN [Concomitant]
     Indication: ATRIAL FIBRILLATION
     Dosage: UNK
     Dates: start: 2010
  4. METOPROLOL [Concomitant]
     Indication: PRODUCT USED FOR UNKNOWN INDICATION
     Dosage: 50 MG, QD
     Route: 048
  5. SYNTHROID [Concomitant]
     Indication: HYPOTHYROIDISM
     Dosage: 100 MCG, QOD
     Route: 048
  6. SYNTHROID [Concomitant]
     Dosage: 125 MCG, QOD
     Route: 048
  7. BUMETANIDE [Concomitant]
     Indication: DIURETIC THERAPY
     Dosage: 10 MG, QD
     Route: 048
  8. CARTIA XT                          /00489701/ [Concomitant]
     Indication: HYPERTENSION
     Dosage: 300 MG, QD
     Route: 048
  9. CLORAZEPATE [Concomitant]
     Indication: PRODUCT USED FOR UNKNOWN INDICATION
     Dosage: 7.5 MG, QD
     Route: 048
  10. ASPIRIN [Concomitant]
     Indication: PRODUCT USED FOR UNKNOWN INDICATION
     Dosage: 81 MG, QD
     Route: 048

REACTIONS (3)
  - Abdominal discomfort [Not Recovered/Not Resolved]
  - Medication residue present [Not Recovered/Not Resolved]
  - Drug ineffective [Not Recovered/Not Resolved]
